FAERS Safety Report 9874019 (Version 2)
Quarter: 2014Q1

REPORT INFORMATION
  Report Type: Other
  Country: US (occurrence: US)
  Receive Date: 20140206
  Receipt Date: 20140206
  Transmission Date: 20141002
  Serious: No
  Sender: FDA-Public Use
  Company Number: US-ACORDA-ACO_33976_2013

PATIENT
  Sex: Female
  Weight: 77.98 kg

DRUGS (8)
  1. AMPYRA [Suspect]
     Indication: MULTIPLE SCLEROSIS
     Dosage: 10 MG, BID
     Dates: start: 201301
  2. COPAXONE [Suspect]
     Indication: MULTIPLE SCLEROSIS
     Dosage: 20 MG, QD
     Route: 058
     Dates: start: 201301
  3. ULTRAM [Concomitant]
     Indication: PAIN
     Dosage: 50 MG, Q 6 PRN
     Route: 048
     Dates: start: 201212
  4. ADDERALL [Concomitant]
     Indication: FATIGUE
     Dosage: 10 MG, Q AM
     Route: 048
     Dates: start: 201212
  5. PLAVIX [Concomitant]
     Indication: ANTICOAGULANT THERAPY
     Dosage: 75 MG, QD
     Route: 048
     Dates: start: 201209
  6. LIPITOR [Concomitant]
     Indication: BLOOD CHOLESTEROL INCREASED
     Dosage: 20 MG, QHS
     Route: 048
     Dates: start: 201209
  7. DETROL LA [Concomitant]
     Indication: NEUROGENIC BLADDER
     Dosage: 4 MG, QD
     Route: 048
     Dates: start: 201209
  8. BONIVA [Concomitant]
     Indication: OSTEOPOROSIS
     Dosage: 150 MG, QD
     Route: 048
     Dates: start: 201209

REACTIONS (1)
  - Injection site mass [Unknown]
